FAERS Safety Report 5256057-1 (Version None)
Quarter: 2007Q1

REPORT INFORMATION
  Report Type: 
  Country: None (occurrence: None)
  Receive Date: 20070302
  Receipt Date: 20070302
  Transmission Date: 20070707
  Serious: Yes (Death)
  Sender: FDA-Public Use
  Company Number: None

PATIENT
  Sex: Male

DRUGS (1)
  1. QUETIAPINE FUMARATE [Suspect]
     Indication: SCHIZOPHRENIA
     Dosage: 600 MG DAILY IN AM 200MG BEDTIME ORAL
     Route: 048
     Dates: start: 20050125, end: 20050207

REACTIONS (4)
  - ADVERSE DRUG REACTION [None]
  - CONFUSIONAL STATE [None]
  - ILL-DEFINED DISORDER [None]
  - SEDATION [None]
